FAERS Safety Report 20906470 (Version 1)
Quarter: 2022Q2

REPORT INFORMATION
  Report Type: Spontaneous
  Country: US (occurrence: None)
  Receive Date: 20220602
  Receipt Date: 20220602
  Transmission Date: 20220720
  Serious: Yes (Hospitalization)
  Sender: FDA-Public Use
  Company Number: None

PATIENT
  Age: 75 Year
  Sex: Male

DRUGS (2)
  1. PRAZOSIN [Suspect]
     Active Substance: PRAZOSIN
     Indication: Hypertension
     Dates: start: 20210518, end: 20220506
  2. HYDROCHLOROTHIAZIDE\SPIRONOLACTONE [Suspect]
     Active Substance: HYDROCHLOROTHIAZIDE\SPIRONOLACTONE
     Indication: Hypertension
     Dates: start: 20210614, end: 20220506

REACTIONS (2)
  - Hypotension [None]
  - Syncope [None]

NARRATIVE: CASE EVENT DATE: 20220505
